FAERS Safety Report 7457632-6 (Version None)
Quarter: 2011Q2

REPORT INFORMATION
  Report Type: 
  Country: None (occurrence: None)
  Receive Date: 20110504
  Receipt Date: 20110419
  Transmission Date: 20111010
  Serious: Yes (Life-Threatening, Hospitalization)
  Sender: FDA-Public Use
  Company Number: US-JNJFOC-20110410875

PATIENT
  Age: 46 Year
  Sex: Male

DRUGS (5)
  1. DURAGESIC [Suspect]
     Route: 062
  2. CYCLOBENZAPRINE [Suspect]
     Indication: TOOTHACHE
     Route: 065
  3. DURAGESIC [Suspect]
     Indication: TOOTHACHE
     Dosage: 4
     Route: 062
  4. NORCO [Suspect]
     Indication: TOOTHACHE
     Dosage: 10/325
     Route: 065
  5. MS CONTIN [Suspect]
     Indication: TOOTHACHE
     Route: 065

REACTIONS (7)
  - MENTAL STATUS CHANGES [None]
  - MULTIPLE DRUG OVERDOSE [None]
  - AGITATION [None]
  - FLUSHING [None]
  - DELIRIUM [None]
  - CONFUSIONAL STATE [None]
  - INAPPROPRIATE SCHEDULE OF DRUG ADMINISTRATION [None]
